FAERS Safety Report 22967240 (Version 3)
Quarter: 2024Q2

REPORT INFORMATION
  Report Type: Report from Study
  Country: KR (occurrence: KR)
  Receive Date: 20230921
  Receipt Date: 20240603
  Transmission Date: 20240716
  Serious: Yes (Hospitalization, Other)
  Sender: FDA-Public Use
  Company Number: KR-ASTELLAS-2022US035054

PATIENT
  Age: 73 Year
  Sex: Male
  Weight: 51.5 kg

DRUGS (20)
  1. GILTERITINIB [Suspect]
     Active Substance: GILTERITINIB
     Indication: Acute myeloid leukaemia
     Route: 048
     Dates: start: 20220610, end: 20221120
  2. GILTERITINIB [Suspect]
     Active Substance: GILTERITINIB
     Indication: FLT3 gene mutation
  3. GASTER [Concomitant]
     Active Substance: FAMOTIDINE
     Indication: Prophylaxis
     Route: 048
     Dates: start: 20220923, end: 20220926
  4. DIGOXIN [Concomitant]
     Active Substance: DIGOXIN
     Indication: Atrial fibrillation
     Dosage: 0.25 MG, ONCE DAILY
     Route: 048
     Dates: start: 20210526
  5. ACYCLOVIR [Concomitant]
     Active Substance: ACYCLOVIR
     Indication: Prophylaxis
     Route: 048
     Dates: start: 20210506
  6. BANAN [Concomitant]
     Active Substance: CEFPODOXIME PROXETIL
     Indication: Prophylaxis
     Route: 048
     Dates: start: 20220701, end: 20220918
  7. IFECTRA [Concomitant]
     Indication: Prophylaxis
     Route: 048
     Dates: start: 20220124, end: 20220710
  8. IFECTRA [Concomitant]
     Route: 048
     Dates: start: 20220919, end: 20220920
  9. IFECTRA [Concomitant]
     Dosage: 200 MG, TWICE DAILY
     Route: 048
     Dates: start: 20220921
  10. BISOPROLOL FUMARATE [Concomitant]
     Active Substance: BISOPROLOL FUMARATE
     Indication: Atrial fibrillation
     Route: 048
     Dates: start: 20210526
  11. AMLODIPINE [Concomitant]
     Active Substance: AMLODIPINE BESYLATE
     Indication: Hypertension
     Route: 048
     Dates: start: 20210617
  12. METFORMIN HYDROCHLORIDE [Concomitant]
     Active Substance: METFORMIN HYDROCHLORIDE
     Indication: Diabetes mellitus
     Dosage: 500 MG, TWICE DAILY (DAIBEX)
     Route: 048
     Dates: start: 20210506
  13. ACECLOFENAC [Concomitant]
     Active Substance: ACECLOFENAC
     Indication: Prophylaxis
     Route: 048
     Dates: start: 20220623
  14. EXJADE [Concomitant]
     Active Substance: DEFERASIROX
     Indication: Haemosiderosis
     Route: 048
     Dates: start: 20220610, end: 20220717
  15. EXJADE [Concomitant]
     Active Substance: DEFERASIROX
     Route: 048
     Dates: start: 20220718
  16. LEVOFLOXACIN [Concomitant]
     Active Substance: LEVOFLOXACIN
     Indication: Prophylaxis
     Route: 048
     Dates: start: 20220311, end: 20220918
  17. Zolex [Concomitant]
     Indication: Prophylaxis
     Route: 048
     Dates: start: 20210506
  18. AZACITIDINE [Concomitant]
     Active Substance: AZACITIDINE
     Indication: Acute myeloid leukaemia
     Dosage: UNK UNK, UNKNOWN FREQ.
     Route: 042
     Dates: start: 20210719, end: 20211113
  19. AZACITIDINE [Concomitant]
     Active Substance: AZACITIDINE
     Dosage: UNK UNK, UNKNOWN FREQ.
     Route: 042
     Dates: start: 20211209, end: 20220610
  20. AZACITIDINE [Concomitant]
     Active Substance: AZACITIDINE
     Route: 042
     Dates: start: 20220623, end: 20220729

REACTIONS (6)
  - Thrombocytopenia [Recovered/Resolved]
  - Pneumonitis [Recovered/Resolved]
  - Anaemia [Recovered/Resolved]
  - Hypophosphataemia [Recovered/Resolved]
  - Product use issue [Unknown]
  - Off label use [Unknown]

NARRATIVE: CASE EVENT DATE: 20220610
